FAERS Safety Report 6830844-8 (Version None)
Quarter: 2010Q3

REPORT INFORMATION
  Report Type: 
  Country: None (occurrence: None)
  Receive Date: 20100709
  Receipt Date: 20100709
  Transmission Date: 20110219
  Serious: Yes (Hospitalization)
  Sender: FDA-Public Use
  Company Number: None

PATIENT
  Age: 66 Year
  Sex: Male

DRUGS (2)
  1. MORPHINE [Suspect]
     Indication: PAIN
     Dosage: 45 MG TID PO
     Route: 048
     Dates: start: 20081016, end: 20091203
  2. GABAPENTIN [Suspect]
     Dosage: 300 MG TID PO
     Route: 048
     Dates: start: 20080519, end: 20091203

REACTIONS (4)
  - CONFUSIONAL STATE [None]
  - SEDATION [None]
  - SOMNOLENCE [None]
  - UNRESPONSIVE TO STIMULI [None]
